FAERS Safety Report 11830596 (Version 1)
Quarter: 2015Q4

REPORT INFORMATION
  Report Type: Spontaneous
  Country: US (occurrence: US)
  Receive Date: 20151214
  Receipt Date: 20151214
  Transmission Date: 20160305
  Serious: Yes (Hospitalization, Other)
  Sender: FDA-Public Use
  Company Number: US-BAYER-2015-482605

PATIENT
  Age: 39 Year
  Sex: Female
  Weight: 94.56 kg

DRUGS (9)
  1. CEFTIN [Concomitant]
     Active Substance: CEFUROXIME AXETIL
  2. ARIXTRA [Concomitant]
     Active Substance: FONDAPARINUX SODIUM
  3. YAZ [Suspect]
     Active Substance: DROSPIRENONE\ETHINYL ESTRADIOL
     Indication: MENORRHAGIA
  4. PRENATAL VITAMINS [Concomitant]
     Active Substance: VITAMINS
  5. LASIX [Concomitant]
     Active Substance: FUROSEMIDE
  6. ARGATROBAN. [Concomitant]
     Active Substance: ARGATROBAN
  7. BEYAZ [Suspect]
     Active Substance: DROSPIRENONE\ETHINYL ESTRADIOL\LEVOMEFOLATE CALCIUM
     Indication: MENORRHAGIA
  8. SEPTRA [Concomitant]
     Active Substance: SULFAMETHOXAZOLE\TRIMETHOPRIM
  9. LEVOTHYROXINE. [Concomitant]
     Active Substance: LEVOTHYROXINE

REACTIONS (5)
  - Embolism arterial [None]
  - Pelvic venous thrombosis [None]
  - Deep vein thrombosis [None]
  - Pulmonary embolism [Recovered/Resolved]
  - Vena cava thrombosis [None]

NARRATIVE: CASE EVENT DATE: 201406
